FAERS Safety Report 9107181 (Version 1)
Quarter: 2013Q1

REPORT INFORMATION
  Report Type: Spontaneous
  Country: US (occurrence: US)
  Receive Date: 20130221
  Receipt Date: 20130221
  Transmission Date: 20140127
  Serious: Yes (Death, Other)
  Sender: FDA-Public Use
  Company Number: US-JNJFOC-20130208736

PATIENT
  Sex: Female

DRUGS (1)
  1. EXTRA STRENGTH TYLENOL PM [Suspect]
     Indication: SLEEP DISORDER
     Route: 048

REACTIONS (4)
  - Coma [Fatal]
  - Aspiration [Fatal]
  - Vomiting [Unknown]
  - Incorrect dose administered [Unknown]
